FAERS Safety Report 7221258-X (Version None)
Quarter: 2011Q1

REPORT INFORMATION
  Report Type: 
  Country: None (occurrence: None)
  Receive Date: 20110112
  Receipt Date: 20101007
  Transmission Date: 20110831
  Serious: No
  Sender: FDA-Public Use
  Company Number: US-BAYER-201022957BCC

PATIENT
  Sex: Male
  Weight: 100 kg

DRUGS (4)
  1. LISINOPRIL [Concomitant]
     Dosage: 12.5 MG, UNK
  2. ALEVE [Suspect]
     Indication: PAIN
     Dosage: 1 DF, HS
     Dates: start: 20100301
  3. FINASTERIDE [Concomitant]
     Dosage: 5 MG, UNK
  4. SIMVASTATIN [Concomitant]
     Dosage: 40 MG, UNK

REACTIONS (1)
  - NO ADVERSE EVENT [None]
